FAERS Safety Report 7954586-0 (Version None)
Quarter: 2011Q4

REPORT INFORMATION
  Report Type: 
  Country: None (occurrence: None)
  Receive Date: 20111202
  Receipt Date: 20111124
  Transmission Date: 20120403
  Serious: Yes (Hospitalization)
  Sender: FDA-Public Use
  Company Number: PHHY2011TR103326

PATIENT
  Age: 59 Year
  Sex: Female
  Weight: 100 kg

DRUGS (3)
  1. ZOLEDRONOC ACID [Suspect]
     Dosage: UNK UKN, UNK
     Route: 042
  2. CAL-D-VITA [Concomitant]
     Dosage: UNK UKN, UNK
  3. PARAFON [Concomitant]
     Dosage: UNK UKN, UNK

REACTIONS (2)
  - CHEST PAIN [None]
  - CHEST DISCOMFORT [None]
